FAERS Safety Report 22679721 (Version 2)
Quarter: 2025Q1

REPORT INFORMATION
  Report Type: Report from Study
  Country: FR (occurrence: FR)
  Receive Date: 20230707
  Receipt Date: 20250312
  Transmission Date: 20250408
  Serious: Yes (Other)
  Sender: AUROBINDO
  Company Number: FR-JNJFOC-20230615430

PATIENT
  Sex: Female

DRUGS (12)
  1. ABACAVIR SULFATE\LAMIVUDINE [Suspect]
     Active Substance: ABACAVIR SULFATE\LAMIVUDINE
     Indication: HIV infection
     Route: 065
  2. DARUNAVIR [Suspect]
     Active Substance: DARUNAVIR
     Indication: HIV infection
     Dosage: 600 MILLIGRAM, ONCE A DAY(600 MG, QD)
     Route: 048
  3. EMTRICITABINE\TENOFOVIR [Suspect]
     Active Substance: EMTRICITABINE\TENOFOVIR
     Indication: HIV infection
     Dosage: 400 MILLIGRAM/KILOGRAM, TWO TIMES A DAY(400 MG/KG, BID)
     Route: 065
  4. NEVIRAPINE [Suspect]
     Active Substance: NEVIRAPINE
     Indication: HIV infection
     Route: 065
  5. RITONAVIR [Suspect]
     Active Substance: RITONAVIR
     Indication: HIV infection
     Dosage: 100 MILLIGRAM, ONCE A DAY(100 MG, QD)
     Route: 065
  6. ATAZANAVIR\RITONAVIR [Suspect]
     Active Substance: ATAZANAVIR\RITONAVIR
     Indication: HIV infection
     Route: 065
  7. COBICISTAT [Suspect]
     Active Substance: COBICISTAT
     Indication: HIV infection
     Route: 065
  8. DOLUTEGRAVIR [Suspect]
     Active Substance: DOLUTEGRAVIR
     Indication: HIV infection
     Route: 065
  9. ELVITEGRAVIR [Suspect]
     Active Substance: ELVITEGRAVIR
     Indication: HIV infection
     Route: 065
  10. ETRAVIRINE [Suspect]
     Active Substance: ETRAVIRINE
     Indication: HIV infection
     Route: 065
  11. RALTEGRAVIR [Suspect]
     Active Substance: RALTEGRAVIR
     Indication: HIV infection
     Dosage: 400 MILLIGRAM, TWO TIMES A DAY(400 MG, BID)
     Route: 065
  12. RILPIVIRINE [Suspect]
     Active Substance: RILPIVIRINE
     Indication: HIV infection
     Route: 065

REACTIONS (12)
  - Diabetes mellitus [Unknown]
  - Abortion spontaneous [Unknown]
  - Cholestasis of pregnancy [Unknown]
  - Haemorrhage [Unknown]
  - HELLP syndrome [Unknown]
  - Hepatic enzyme increased [Unknown]
  - Virologic failure [Unknown]
  - Premature labour [Recovered/Resolved]
  - Postpartum haemorrhage [Unknown]
  - Pre-eclampsia [Unknown]
  - Exposure during pregnancy [Unknown]
  - Drug intolerance [Unknown]
